FAERS Safety Report 9912681 (Version 1)
Quarter: 2014Q1

REPORT INFORMATION
  Report Type: Spontaneous
  Country: US (occurrence: None)
  Receive Date: 20140218
  Receipt Date: 20140218
  Transmission Date: 20141002
  Serious: Yes (Other)
  Sender: FDA-Public Use
  Company Number: None

PATIENT
  Age: 59 Year
  Sex: Male
  Weight: 70.31 kg

DRUGS (3)
  1. AMBIEN [Suspect]
  2. SIMVASTATIN [Concomitant]
  3. LISINOPRIL [Suspect]

REACTIONS (5)
  - Confusional state [None]
  - Abnormal behaviour [None]
  - Product label issue [None]
  - Drug dispensing error [None]
  - Wrong drug administered [None]
